FAERS Safety Report 9556968 (Version 2)
Quarter: 2013Q3

REPORT INFORMATION
  Report Type: Report from Study
  Country: DE (occurrence: DE)
  Receive Date: 20130926
  Receipt Date: 20130926
  Transmission Date: 20140515
  Serious: Yes (Hospitalization, Other)
  Sender: FDA-Public Use
  Company Number: DE-ABBVIE-13P-062-1124479-00

PATIENT
  Age: 72 Year
  Sex: Male
  Weight: 82 kg

DRUGS (2)
  1. HUMIRA [Suspect]
     Indication: PSORIASIS
     Route: 058
     Dates: start: 20120514, end: 20130627
  2. INSULIN [Suspect]
     Indication: DIABETES MELLITUS
     Dates: start: 201301

REACTIONS (8)
  - Hepatitis [Not Recovered/Not Resolved]
  - Pancreatitis [Not Recovered/Not Resolved]
  - Cholestasis [Recovering/Resolving]
  - Microlithiasis [Recovering/Resolving]
  - Bile duct stone [Recovering/Resolving]
  - Cholangitis suppurative [Recovering/Resolving]
  - Pancreatitis [Recovering/Resolving]
  - Constipation [Unknown]
